FAERS Safety Report 6550612-4 (Version None)
Quarter: 2010Q1

REPORT INFORMATION
  Report Type: 
  Country: None (occurrence: None)
  Receive Date: 20100125
  Receipt Date: 20090122
  Transmission Date: 20100710
  Serious: No
  Sender: FDA-Public Use
  Company Number: US-TYCO HEALTHCARE/MALLINCKRODT-T200900098

PATIENT
  Age: 82 Year
  Sex: Female

DRUGS (1)
  1. OPTIRAY 350 [Suspect]
     Indication: ABSCESS
     Dosage: 100 ML, SINGLE
     Route: 042
     Dates: start: 20081231, end: 20081231

REACTIONS (3)
  - DYSPNOEA [None]
  - FLUSHING [None]
  - SKIN WARM [None]
